FAERS Safety Report 9261345 (Version 2)
Quarter: 2013Q2

REPORT INFORMATION
  Report Type: Spontaneous
  Country: CN (occurrence: CN)
  Receive Date: 20130429
  Receipt Date: 20130523
  Transmission Date: 20140414
  Serious: Yes (Other)
  Sender: FDA-Public Use
  Company Number: CN-GLAXOSMITHKLINE-B0888108A

PATIENT
  Age: 67 Year
  Sex: Female

DRUGS (2)
  1. LAMICTAL [Suspect]
     Indication: EPILEPSY
     Dosage: 4TAB UNKNOWN
     Route: 048
     Dates: start: 201301
  2. CARBAMAZEPINE [Concomitant]
     Indication: EPILEPSY
     Route: 048
     Dates: start: 1993, end: 201302

REACTIONS (3)
  - Retinal haemorrhage [Recovered/Resolved]
  - Epilepsy [Recovered/Resolved]
  - Overdose [Recovered/Resolved]
